FAERS Safety Report 4559427-X (Version None)
Quarter: 2005Q1

REPORT INFORMATION
  Report Type: 
  Country: None (occurrence: None)
  Receive Date: 20050119
  Receipt Date: 20050106
  Transmission Date: 20050727
  Serious: Yes (Hospitalization)
  Sender: FDA-Public Use
  Company Number: 2005PK00054

PATIENT
  Age: 64 Year
  Sex: Male
  Weight: 93 kg

DRUGS (3)
  1. CARBOSTESIN ^ASTRA^ [Suspect]
     Indication: ANAESTHESIA
     Dosage: 15 ML ONCE ED
     Route: 008
     Dates: start: 20041028, end: 20041028
  2. SUFENTA [Concomitant]
  3. NAROPIN [Concomitant]

REACTIONS (2)
  - ANAESTHETIC COMPLICATION [None]
  - SPINAL CORD DISORDER [None]
